FAERS Safety Report 13108851 (Version 1)
Quarter: 2017Q1

REPORT INFORMATION
  Report Type: Spontaneous
  Country: JP (occurrence: JP)
  Receive Date: 20170112
  Receipt Date: 20170112
  Transmission Date: 20170428
  Serious: Yes (Life-Threatening)
  Sender: FDA-Public Use
  Company Number: JP-GLAXOSMITHKLINE-JP2017003313

PATIENT
  Age: 75 Year
  Sex: Female

DRUGS (10)
  1. METHOTREXATE. [Concomitant]
     Active Substance: METHOTREXATE
     Indication: RHEUMATOID ARTHRITIS
  2. GANCICLOVIR. [Suspect]
     Active Substance: GANCICLOVIR
     Indication: VIRAL VASCULITIS
  3. ACTIVIR [Suspect]
     Active Substance: ACYCLOVIR
     Indication: VIRAL VASCULITIS
  4. METHYLPREDNISOLONE. [Suspect]
     Active Substance: METHYLPREDNISOLONE
     Indication: VIRAL VASCULITIS
  5. GANCICLOVIR. [Suspect]
     Active Substance: GANCICLOVIR
     Indication: VASCULITIS CEREBRAL
  6. FOSCARNET [Suspect]
     Active Substance: FOSCARNET
     Indication: VIRAL VASCULITIS
  7. FOSCARNET [Suspect]
     Active Substance: FOSCARNET
     Indication: VASCULITIS CEREBRAL
  8. ACTIVIR [Suspect]
     Active Substance: ACYCLOVIR
     Indication: VASCULITIS CEREBRAL
  9. METHYLPREDNISOLONE. [Suspect]
     Active Substance: METHYLPREDNISOLONE
     Indication: VASCULITIS CEREBRAL
  10. PREDNISOLONE. [Concomitant]
     Active Substance: PREDNISOLONE
     Indication: RHEUMATOID ARTHRITIS

REACTIONS (1)
  - Drug ineffective [Not Recovered/Not Resolved]
